FAERS Safety Report 8168113-9 (Version None)
Quarter: 2012Q1

REPORT INFORMATION
  Report Type: 
  Country: None (occurrence: None)
  Receive Date: 20120103
  Receipt Date: 20111103
  Transmission Date: 20120608
  Serious: No
  Sender: FDA-Public Use
  Company Number: AE-2011-003054

PATIENT
  Sex: Male
  Weight: 74.8435 kg

DRUGS (4)
  1. INCIVEK [Suspect]
     Dosage: (750 MG, Q 7-9 HRS), ORAL
     Route: 048
     Dates: start: 20110824, end: 20111102
  2. RIBAVIRIN [Concomitant]
  3. PEGINTERFERON (PEGINTERFERON ALFA-2A) [Concomitant]
  4. METFORMIN HCL [Concomitant]

REACTIONS (1)
  - RASH PRURITIC [None]
